FAERS Safety Report 16930360 (Version 1)
Quarter: 2019Q4

REPORT INFORMATION
  Report Type: Spontaneous
  Country: US (occurrence: US)
  Receive Date: 20190826
  Receipt Date: 20190826
  Transmission Date: 20200122
  Serious: No
  Sender: FDA-Public Use
  Company Number: None

PATIENT
  Age: 83 Year
  Sex: Female

DRUGS (1)
  1. OPSUMIT [Suspect]
     Active Substance: MACITENTAN
     Indication: PULMONARY EMBOLISM
     Route: 048
     Dates: start: 20151021

REACTIONS (5)
  - Dyspnoea exertional [None]
  - Anaemia [None]
  - Arteriovenous malformation [None]
  - Packed red blood cell transfusion [None]
  - Blood product transfusion dependent [None]

NARRATIVE: CASE EVENT DATE: 20190802
